FAERS Safety Report 11188780 (Version 1)
Quarter: 2015Q2

REPORT INFORMATION
  Report Type: Spontaneous
  Country: US (occurrence: None)
  Receive Date: 20150612
  Receipt Date: 20150612
  Transmission Date: 20150821
  Serious: Yes (Disabling)
  Sender: FDA-Public Use
  Company Number: None

PATIENT
  Age: 57 Year
  Sex: Male
  Weight: 95.26 kg

DRUGS (1)
  1. CONTRAVE [Suspect]
     Active Substance: BUPROPION HYDROCHLORIDE\NALTREXONE HYDROCHLORIDE
     Indication: WEIGHT DECREASED

REACTIONS (7)
  - Vision blurred [None]
  - Blood glucose decreased [None]
  - Dizziness [None]
  - Dry mouth [None]
  - Constipation [None]
  - Amnesia [None]
  - Headache [None]

NARRATIVE: CASE EVENT DATE: 20150416
